FAERS Safety Report 9244696 (Version 1)
Quarter: 2013Q2

REPORT INFORMATION
  Report Type: Spontaneous
  Country: US (occurrence: US)
  Receive Date: 20130422
  Receipt Date: 20130422
  Transmission Date: 20140414
  Serious: Yes (Hospitalization)
  Sender: FDA-Public Use
  Company Number: US-JNJFOC-20130408280

PATIENT
  Sex: Female

DRUGS (6)
  1. XARELTO [Suspect]
     Indication: THROMBOSIS PROPHYLAXIS
     Route: 048
     Dates: start: 201304, end: 201304
  2. XARELTO [Suspect]
     Indication: THROMBOSIS PROPHYLAXIS
     Route: 048
  3. XARELTO [Suspect]
     Indication: KNEE ARTHROPLASTY
     Route: 048
     Dates: start: 201304, end: 201304
  4. XARELTO [Suspect]
     Indication: KNEE ARTHROPLASTY
     Route: 048
  5. XARELTO [Suspect]
     Indication: PROTEIN S DEFICIENCY
     Route: 048
  6. XARELTO [Suspect]
     Indication: PROTEIN S DEFICIENCY
     Route: 048
     Dates: start: 201304, end: 201304

REACTIONS (3)
  - Deep vein thrombosis [Unknown]
  - Knee arthroplasty [Recovered/Resolved]
  - Off label use [Unknown]
